FAERS Safety Report 20269321 (Version 1)
Quarter: 2022Q1

REPORT INFORMATION
  Report Type: Other
  Country: CN (occurrence: None)
  Receive Date: 20220101
  Receipt Date: 20220101
  Transmission Date: 20220423
  Serious: Yes (Other)
  Sender: FDA-Public Use
  Company Number: CN-ROCHE-2987190

PATIENT
  Age: 60 Year
  Sex: Female

DRUGS (6)
  1. VEMURAFENIB [Suspect]
     Active Substance: VEMURAFENIB
     Indication: Breast cancer
     Route: 065
  2. VINORELBINE [Concomitant]
     Active Substance: VINORELBINE TARTRATE
  3. CISPLATIN [Concomitant]
     Active Substance: CISPLATIN
  4. PACLITAXEL [Concomitant]
     Active Substance: PACLITAXEL
  5. DOCETAXEL [Concomitant]
     Active Substance: DOCETAXEL
  6. CAPECITABINE [Concomitant]
     Active Substance: CAPECITABINE
     Route: 048

REACTIONS (4)
  - Myelosuppression [Unknown]
  - Diarrhoea [Unknown]
  - Off label use [Unknown]
  - Mouth ulceration [Unknown]
